FAERS Safety Report 6047446-6 (Version None)
Quarter: 2009Q1

REPORT INFORMATION
  Report Type: 
  Country: None (occurrence: None)
  Receive Date: 20090122
  Receipt Date: 20090120
  Transmission Date: 20090719
  Serious: No
  Sender: FDA-Public Use
  Company Number: US-B.I. PHARMACEUTICALS,INC./RIDGEFIELD-2009-BP-00701BP

PATIENT
  Sex: Male

DRUGS (2)
  1. COMBIVENT [Suspect]
  2. ALBUTEROL [Concomitant]

REACTIONS (1)
  - TREMOR [None]
